FAERS Safety Report 14653762 (Version 10)
Quarter: 2019Q2

REPORT INFORMATION
  Report Type: Report from Study
  Country: CA (occurrence: CA)
  Receive Date: 20180319
  Receipt Date: 20190520
  Transmission Date: 20190711
  Serious: Yes (Hospitalization, Other)
  Sender: FDA-Public Use
  Company Number: CA-BRISTOL-MYERS SQUIBB COMPANY-BMS-2017-121478

PATIENT
  Age: 84 Year
  Sex: Female
  Weight: 56.8 kg

DRUGS (2)
  1. ABATACEPT [Suspect]
     Active Substance: ABATACEPT
     Indication: POLYARTHRITIS
     Dosage: 750 MG, Q4WK
     Route: 042
     Dates: start: 20131022, end: 20190128
  2. APO-LEFLUNOMIDE [Suspect]
     Active Substance: LEFLUNOMIDE
     Indication: PRODUCT USED FOR UNKNOWN INDICATION
     Dosage: 10 MG, QD
     Route: 065

REACTIONS (20)
  - Localised oedema [Recovered/Resolved]
  - External ear cellulitis [Not Recovered/Not Resolved]
  - Pain in extremity [Unknown]
  - Lung disorder [Unknown]
  - Synovial cyst [Unknown]
  - Cyst [Unknown]
  - Nasopharyngitis [Unknown]
  - Asthenia [Unknown]
  - Infection [Unknown]
  - Pneumonia [Recovered/Resolved]
  - Oedema peripheral [Unknown]
  - Malaise [Unknown]
  - Prescribed overdose [Unknown]
  - Plantar fasciitis [Unknown]
  - Erythema [Recovered/Resolved]
  - Rhinorrhoea [Unknown]
  - Arthritis [Not Recovered/Not Resolved]
  - Decreased appetite [Unknown]
  - Food allergy [Recovering/Resolving]
  - Weight decreased [Unknown]

NARRATIVE: CASE EVENT DATE: 20180719
